FAERS Safety Report 16410389 (Version 1)
Quarter: 2019Q2

REPORT INFORMATION
  Report Type: Spontaneous
  Country: US (occurrence: US)
  Receive Date: 20190610
  Receipt Date: 20190610
  Transmission Date: 20190711
  Serious: No
  Sender: FDA-Public Use
  Company Number: US-PFIZER INC-2019241183

PATIENT
  Age: 53 Year
  Sex: Male
  Weight: 273.8 kg

DRUGS (1)
  1. NITROGLYCERIN. [Suspect]
     Active Substance: NITROGLYCERIN
     Dosage: UNK

REACTIONS (3)
  - Speech disorder [Unknown]
  - Blood pressure decreased [Unknown]
  - Drug hypersensitivity [Unknown]
